FAERS Safety Report 5986591-8 (Version None)
Quarter: 2008Q4

REPORT INFORMATION
  Report Type: 
  Country: None (occurrence: None)
  Receive Date: 20081209
  Receipt Date: 20080910
  Transmission Date: 20090506
  Serious: No
  Sender: FDA-Public Use
  Company Number: US-AMGEN-KDL306166

PATIENT
  Sex: Female
  Weight: 59 kg

DRUGS (9)
  1. ENBREL [Suspect]
     Indication: RHEUMATOID ARTHRITIS
     Route: 058
     Dates: start: 20070801
  2. METHOTREXATE [Concomitant]
     Route: 048
  3. ADVAIR HFA [Concomitant]
  4. PRILOSEC [Concomitant]
  5. LEUCOVORIN CALCIUM [Concomitant]
  6. FOSAMAX [Concomitant]
  7. TRAZODONE HCL [Concomitant]
  8. CELEXA [Concomitant]
  9. ABILIFY [Concomitant]

REACTIONS (1)
  - RHEUMATOID ARTHRITIS [None]
